FAERS Safety Report 5720404 (Version 3)
Quarter: 2016Q3

REPORT INFORMATION
  Report Type: Spontaneous
  Country: FR (occurrence: FR)
  Receive Date: 20050121
  Receipt Date: 20160826
  Transmission Date: 20161109
  Serious: Yes (Other)
  Sender: FDA-Public Use
  Company Number: FR-BRISTOL-MYERS SQUIBB COMPANY-12821765

PATIENT
  Age: 0 Day
  Sex: Female
  Weight: 1.8 kg

DRUGS (9)
  1. RETROVIR [Suspect]
     Active Substance: ZIDOVUDINE
     Indication: PRODUCT USED FOR UNKNOWN INDICATION
     Dosage: 1.5 MG/KG, QID
     Route: 042
     Dates: start: 20041209
  2. VIRACEPT [Suspect]
     Active Substance: NELFINAVIR MESYLATE
     Indication: PRODUCT USED FOR UNKNOWN INDICATION
     Dosage: UNK
     Route: 064
     Dates: end: 20041209
  3. CLAMOXYL [Suspect]
     Active Substance: AMOXICILLIN\CLAVULANIC ACID
     Indication: PRODUCT USED FOR UNKNOWN INDICATION
     Dosage: UNK
     Route: 042
     Dates: start: 20041209, end: 20041210
  4. VIDEX [Suspect]
     Active Substance: DIDANOSINE
     Indication: PRODUCT USED FOR UNKNOWN INDICATION
     Dosage: UNK
     Route: 064
  5. CLAFORAN [Concomitant]
     Active Substance: CEFOTAXIME SODIUM
     Indication: HAEMOPHILUS TEST POSITIVE
     Dosage: UNK
     Route: 065
     Dates: end: 20041210
  6. RETROVIR [Suspect]
     Active Substance: ZIDOVUDINE
     Dosage: 1.5 MG/KG, BID
     Route: 042
  7. TRANQUITAL [Suspect]
     Active Substance: HERBALS
     Indication: PRODUCT USED FOR UNKNOWN INDICATION
     Dosage: UNK
     Route: 064
     Dates: end: 20041209
  8. GENTAMICIN. [Concomitant]
     Active Substance: GENTAMICIN
     Indication: HAEMOPHILUS TEST POSITIVE
     Route: 065
  9. RETROVIR [Suspect]
     Active Substance: ZIDOVUDINE
     Indication: PRODUCT USED FOR UNKNOWN INDICATION
     Dosage: 12 MG, QD
     Route: 064
     Dates: start: 20041209, end: 20041209

REACTIONS (8)
  - Respiratory distress [Recovered/Resolved]
  - Blood lactic acid increased [Unknown]
  - Haemophilus test positive [Unknown]
  - Premature baby [Unknown]
  - Blood bilirubin increased [Unknown]
  - Tremor [Recovered/Resolved]
  - C-reactive protein increased [Unknown]
  - Foetal exposure during pregnancy [Recovered/Resolved]

NARRATIVE: CASE EVENT DATE: 20041209
